FAERS Safety Report 9656623 (Version 2)
Quarter: 2013Q4

REPORT INFORMATION
  Report Type: Report from Study
  Country: AT (occurrence: AT)
  Receive Date: 20131030
  Receipt Date: 20131106
  Transmission Date: 20140711
  Serious: Yes (Other)
  Sender: FDA-Public Use
  Company Number: AT-ASTELLAS-2013US011110

PATIENT
  Age: 61 Year
  Sex: Female

DRUGS (4)
  1. ERLOTINIB TABLET [Suspect]
     Indication: NON-SMALL CELL LUNG CANCER
     Dosage: 100 MG, UID/QD
     Route: 048
     Dates: start: 20130630
  2. TELMISARTAN [Concomitant]
     Indication: HYPERTENSION
     Dosage: UNK
     Route: 065
     Dates: start: 2013
  3. ATENOLOL [Concomitant]
     Indication: HYPERTENSION
     Dosage: UNK
     Route: 065
     Dates: start: 2013
  4. PANTOPRAZOLE [Concomitant]
     Indication: HYPERTENSION
     Dosage: UNK
     Route: 065
     Dates: start: 2013

REACTIONS (5)
  - Incorrect dose administered [Unknown]
  - Diffuse alopecia [Recovering/Resolving]
  - Hypogeusia [Not Recovered/Not Resolved]
  - Rash [Recovering/Resolving]
  - Pruritus [Recovering/Resolving]
